FAERS Safety Report 6106009-4 (Version None)
Quarter: 2009Q1

REPORT INFORMATION
  Report Type: 
  Country: None (occurrence: None)
  Receive Date: 20090306
  Receipt Date: 20090306
  Transmission Date: 20090719
  Serious: No
  Sender: FDA-Public Use
  Company Number: None

PATIENT
  Age: 71 Year
  Sex: Female
  Weight: 72.5755 kg

DRUGS (1)
  1. ENBREL [Suspect]
     Indication: RHEUMATOID ARTHRITIS
     Dosage: 50 MG INJECTION 1 X 1 WEEK
     Dates: start: 20040101, end: 20080101

REACTIONS (3)
  - IMMUNE SYSTEM DISORDER [None]
  - PRODUCTIVE COUGH [None]
  - PULMONARY CONGESTION [None]
